FAERS Safety Report 8556246-4 (Version None)
Quarter: 2012Q3

REPORT INFORMATION
  Report Type: 
  Country: None (occurrence: None)
  Receive Date: 20120801
  Receipt Date: 20120723
  Transmission Date: 20120928
  Serious: Yes (Hospitalization)
  Sender: FDA-Public Use
  Company Number: JP-VERTEX PHARMACEUTICALS INC.-AE-2012-010990

PATIENT
  Age: 69 Year
  Sex: Female

DRUGS (7)
  1. TELAVIC (TELAPREVIR) [Suspect]
     Route: 048
     Dates: start: 20120625
  2. REBETOL [Concomitant]
     Indication: HEPATITIS C
     Route: 048
     Dates: start: 20120521, end: 20120617
  3. MUCOSTA [Concomitant]
     Route: 048
     Dates: start: 20120529
  4. PEGINTERFERON ALFA-2B [Concomitant]
     Indication: HEPATITIS C
     Route: 058
     Dates: start: 20120521
  5. REBETOL [Concomitant]
     Route: 048
     Dates: start: 20120618
  6. VOLTAREN [Concomitant]
     Route: 054
     Dates: start: 20120521
  7. TELAVIC (TELAPREVIR) [Suspect]
     Indication: HEPATITIS C
     Route: 048
     Dates: start: 20120521, end: 20120624

REACTIONS (2)
  - NAUSEA [None]
  - MALAISE [None]
